FAERS Safety Report 24443618 (Version 2)
Quarter: 2024Q4

REPORT INFORMATION
  Report Type: Report from Study
  Country: US (occurrence: US)
  Receive Date: 20241016
  Receipt Date: 20241017
  Transmission Date: 20250114
  Serious: No
  Sender: ROCHE
  Company Number: US-ROCHE-2244728

PATIENT
  Age: 59 Year
  Sex: Female

DRUGS (3)
  1. RITUXAN [Suspect]
     Active Substance: RITUXIMAB
     Indication: Connective tissue disorder
     Dosage: DAY 1 AND DAY 15? FREQUENCY TEXT:DAY 1 DAY 15
     Route: 041
     Dates: start: 20180724
  2. RITUXAN [Suspect]
     Active Substance: RITUXIMAB
     Route: 041
     Dates: start: 20180807
  3. RITUXAN [Suspect]
     Active Substance: RITUXIMAB
     Dosage: DAY 1 DAY 15 REPEAT SERIES EVERY 4-6 MONTH? FREQUENCY TEXT:DAY 1 DAY 15
     Route: 041
     Dates: start: 20211026

REACTIONS (2)
  - Off label use [Unknown]
  - No adverse event [Unknown]
